FAERS Safety Report 20770665 (Version 1)
Quarter: 2022Q2

REPORT INFORMATION
  Report Type: Spontaneous
  Country: US (occurrence: US)
  Receive Date: 20220429
  Receipt Date: 20220429
  Transmission Date: 20220721
  Serious: Yes (Death, Other)
  Sender: FDA-Public Use
  Company Number: US-GW PHARMA-2022-US-014054

PATIENT
  Sex: Male

DRUGS (9)
  1. EPIDIOLEX [Suspect]
     Active Substance: CANNABIDIOL
     Indication: Epilepsy
     Dosage: TAKE 6ML VIA G-TUBE EVERY NIGHT
  2. DIAZEPAM [Concomitant]
     Active Substance: DIAZEPAM
  3. VITAMIN D3 [Concomitant]
     Active Substance: CHOLECALCIFEROL
  4. KEPPRA [Concomitant]
     Active Substance: LEVETIRACETAM
  5. BACLOFEN [Concomitant]
     Active Substance: BACLOFEN
  6. GLYCOPYRROLATE [Concomitant]
     Active Substance: GLYCOPYRROLATE
  7. MELATONIN [Concomitant]
     Active Substance: MELATONIN
  8. DIMETHICONE [Concomitant]
     Active Substance: DIMETHICONE
  9. VIMPAT [Concomitant]
     Active Substance: LACOSAMIDE

REACTIONS (1)
  - Death [Fatal]
